FAERS Safety Report 4615970-6 (Version None)
Quarter: 2005Q1

REPORT INFORMATION
  Report Type: 
  Country: None (occurrence: None)
  Receive Date: 20050318
  Receipt Date: 20050307
  Transmission Date: 20050727
  Serious: Yes (Death, Life-Threatening)
  Sender: FDA-Public Use
  Company Number: 2005042644

PATIENT
  Age: 60 Year
  Sex: Male

DRUGS (2)
  1. PRODILANTIN (FOSPHENYTOIN SODIUM) [Suspect]
     Indication: GRAND MAL CONVULSION
     Dosage: 1 GRAM, INTRAVENOUS
     Route: 042
     Dates: start: 20050117, end: 20050117
  2. DIAZEPAM [Suspect]
     Indication: GRAND MAL CONVULSION
     Dosage: 20 MG, INTRAVENOUS
     Route: 042
     Dates: start: 20050117, end: 20050117

REACTIONS (4)
  - HAEMODYNAMIC INSTABILITY [None]
  - HYPOTENSION [None]
  - NERVOUS SYSTEM DISORDER [None]
  - VENTRICULAR TACHYCARDIA [None]
